FAERS Safety Report 14395852 (Version 1)
Quarter: 2018Q1

REPORT INFORMATION
  Report Type: Spontaneous
  Country: US (occurrence: US)
  Receive Date: 20180116
  Receipt Date: 20180116
  Transmission Date: 20180509
  Serious: No
  Sender: FDA-Public Use
  Company Number: US-ALLERGAN-1724534US

PATIENT
  Age: 55 Year
  Sex: Female

DRUGS (3)
  1. JUVEDERM [Concomitant]
     Active Substance: HYALURONIC ACID
  2. COLESTIPOL [Concomitant]
     Active Substance: COLESTIPOL
  3. BOTOX COSMETIC [Suspect]
     Active Substance: ONABOTULINUMTOXINA
     Indication: SKIN WRINKLING
     Dosage: UNK, SINGLE
     Route: 030

REACTIONS (4)
  - Off label use [Unknown]
  - Mass [Recovering/Resolving]
  - Injection site induration [Recovering/Resolving]
  - Adverse drug reaction [Recovering/Resolving]

NARRATIVE: CASE EVENT DATE: 20170515
